FAERS Safety Report 13162317 (Version 1)
Quarter: 2017Q1

REPORT INFORMATION
  Report Type: Spontaneous
  Country: US (occurrence: US)
  Receive Date: 20170125
  Receipt Date: 20170125
  Transmission Date: 20170428
  Serious: Yes (Other)
  Sender: FDA-Public Use
  Company Number: None

PATIENT
  Age: 74 Year
  Sex: Male
  Weight: 91.8 kg

DRUGS (6)
  1. COQ 10 MULTI VITAMIN [Concomitant]
  2. ASPIRIN. [Concomitant]
     Active Substance: ASPIRIN
  3. EXTIMIBE [Concomitant]
  4. ATORVASTATIN [Suspect]
     Active Substance: ATORVASTATIN
     Indication: BLOOD CHOLESTEROL INCREASED
     Dosage: ?          QUANTITY:1 TABLET(S);OTHER ROUTE:MOUTH?
     Route: 048
     Dates: start: 20010130
  5. LOSARTAN. [Concomitant]
     Active Substance: LOSARTAN
  6. HYDRALAZINE HCL [Concomitant]
     Active Substance: HYDRALAZINE HYDROCHLORIDE

REACTIONS (5)
  - Myalgia [None]
  - Diabetes mellitus [None]
  - Renal disorder [None]
  - Glucose tolerance impaired [None]
  - Asthenia [None]

NARRATIVE: CASE EVENT DATE: 20170117
